FAERS Safety Report 14912634 (Version 1)
Quarter: 2018Q2

REPORT INFORMATION
  Report Type: Spontaneous
  Country: US (occurrence: US)
  Receive Date: 20180501
  Receipt Date: 20180501
  Transmission Date: 20180711
  Serious: Yes (Hospitalization, Other)
  Sender: FDA-Public Use
  Company Number: None

PATIENT
  Age: 37 Year
  Sex: Female
  Weight: 65 kg

DRUGS (11)
  1. IPILIMUMAB [Suspect]
     Active Substance: IPILIMUMAB
     Indication: EYE NAEVUS
     Route: 042
     Dates: start: 20171219, end: 20180220
  2. ENOXAPARIN [Concomitant]
     Active Substance: ENOXAPARIN
  3. ACETAMINOPHEN. [Concomitant]
     Active Substance: ACETAMINOPHEN
  4. ATOVAQUONE. [Concomitant]
     Active Substance: ATOVAQUONE
  5. MIDAZOLAM [Concomitant]
     Active Substance: MIDAZOLAM HYDROCHLORIDE
  6. DICYCLOMINE [Concomitant]
     Active Substance: DICYCLOMINE HYDROCHLORIDE
  7. FENTANYL. [Concomitant]
     Active Substance: FENTANYL
  8. HYDROCORTISONE. [Concomitant]
     Active Substance: HYDROCORTISONE
  9. LOPERAMIDE [Concomitant]
     Active Substance: LOPERAMIDE
  10. ONDANSETRON [Concomitant]
     Active Substance: ONDANSETRON
  11. NYSTATIN. [Concomitant]
     Active Substance: NYSTATIN

REACTIONS (9)
  - Diarrhoea [None]
  - Haemorrhoids [None]
  - Haematochezia [None]
  - Colitis [None]
  - Gastrointestinal haemorrhage [None]
  - Proctalgia [None]
  - Nausea [None]
  - Pyrexia [None]
  - Abdominal distension [None]

NARRATIVE: CASE EVENT DATE: 20180313
